FAERS Safety Report 8505424-9 (Version None)
Quarter: 2012Q2

REPORT INFORMATION
  Report Type: 
  Country: None (occurrence: None)
  Receive Date: 20120405
  Receipt Date: 20091022
  Transmission Date: 20120825
  Serious: Yes (Hospitalization)
  Sender: FDA-Public Use
  Company Number: PHEH2009US14331

PATIENT
  Age: 77 Year
  Sex: Female

DRUGS (2)
  1. VITAMIN D [Concomitant]
  2. RECLAST [Suspect]
     Dosage: 5MG, INFUSION
     Dates: start: 20091001, end: 20091001

REACTIONS (3)
  - INFLUENZA LIKE ILLNESS [None]
  - MOVEMENT DISORDER [None]
  - BONE PAIN [None]
